FAERS Safety Report 11490955 (Version 1)
Quarter: 2015Q3

REPORT INFORMATION
  Report Type: Report from Study
  Country: HU (occurrence: HU)
  Receive Date: 20150910
  Receipt Date: 20150910
  Transmission Date: 20151125
  Serious: Yes (Hospitalization, Other)
  Sender: FDA-Public Use
  Company Number: HU-ABBVIE-15P-076-1455397-00

PATIENT
  Age: 67 Year
  Sex: Male

DRUGS (2)
  1. DUODOPA [Suspect]
     Active Substance: CARBIDOPA\LEVODOPA
     Indication: PARKINSON^S DISEASE
     Dosage: MD: 8.0ML; CRD: 3.4 ML/H; ED: 1.2ML
     Route: 050
     Dates: start: 20140921, end: 20150904
  2. VALSOCARD [Concomitant]
     Indication: HYPERTENSION
     Route: 048

REACTIONS (4)
  - Stoma site inflammation [Recovered/Resolved]
  - Pneumonia [Unknown]
  - Stoma site discharge [Recovered/Resolved]
  - Device dislocation [Unknown]

NARRATIVE: CASE EVENT DATE: 20150820
